FAERS Safety Report 8449084-4 (Version None)
Quarter: 2012Q2

REPORT INFORMATION
  Report Type: 
  Country: None (occurrence: None)
  Receive Date: 20120612
  Receipt Date: 20120529
  Transmission Date: 20120825
  Serious: Yes (Hospitalization)
  Sender: FDA-Public Use
  Company Number: 2012-002104

PATIENT
  Age: 85 Year
  Sex: Female

DRUGS (14)
  1. CEFTRIAXONE  (CEFTRIAXONE SODIUM) [Suspect]
     Indication: ENDOCARDITIS
     Dosage: 2 G, BID, INTRAVENOUS : 2 G, QD
     Route: 042
     Dates: start: 20111202
  2. CEFTRIAXONE  (CEFTRIAXONE SODIUM) [Suspect]
     Indication: ENDOCARDITIS
     Dosage: 2 G, BID, INTRAVENOUS : 2 G, QD
     Route: 042
     Dates: end: 20120116
  3. ATORVASTATIN CALCIUM [Concomitant]
  4. GENTAMICIN [Suspect]
     Dosage: 6 MG/KG, QD
     Dates: end: 20111217
  5. TRUSOPT [Concomitant]
  6. CALCIUM CARBONATE [Concomitant]
  7. ACTONEL [Suspect]
     Dosage: 35 MG ONCE WEEKLY, ORAL
     Route: 048
     Dates: end: 20120201
  8. LOVENOX [Suspect]
     Dosage: 5000 IU, BID
     Dates: end: 20120201
  9. FOLFOX-4 (FLUOROURACIL, FOLINIC ACID, OXALIPLATIN) [Suspect]
  10. HYZAAR [Concomitant]
  11. NULYTELY [Concomitant]
  12. CIPROFLOXACIN HCL [Suspect]
     Dosage: 500 MG, BID, ORAL
     Route: 048
     Dates: start: 20111217, end: 20120102
  13. JANUMET [Concomitant]
  14. XALATAN [Concomitant]

REACTIONS (8)
  - DIZZINESS POSTURAL [None]
  - HAEMOGLOBIN DECREASED [None]
  - GAIT DISTURBANCE [None]
  - BLOOD POTASSIUM DECREASED [None]
  - BALANCE DISORDER [None]
  - OVERDOSE [None]
  - FEELING DRUNK [None]
  - FALL [None]
